FAERS Safety Report 7748062-8 (Version None)
Quarter: 2011Q3

REPORT INFORMATION
  Report Type: 
  Country: None (occurrence: None)
  Receive Date: 20110913
  Receipt Date: 20110708
  Transmission Date: 20111222
  Serious: No
  Sender: FDA-Public Use
  Company Number: US-ALLERGAN-1109221US

PATIENT
  Age: 17 Year
  Sex: Female

DRUGS (2)
  1. ACZONE [Suspect]
     Indication: ACNE
     Dosage: 1-2 TIMES, QD
     Route: 061
     Dates: start: 20110504, end: 20110628
  2. ATRALIN [Concomitant]
     Indication: ACNE
     Dosage: UNK
     Dates: start: 20110501

REACTIONS (1)
  - DRUG INEFFECTIVE [None]
